FAERS Safety Report 17557915 (Version 1)
Quarter: 2020Q1

REPORT INFORMATION
  Report Type: Spontaneous
  Country: MX (occurrence: MX)
  Receive Date: 20200319
  Receipt Date: 20200319
  Transmission Date: 20200409
  Serious: Yes (Other)
  Sender: FDA-Public Use
  Company Number: MX-ABBVIE-20K-107-3326051-00

PATIENT
  Sex: Female
  Weight: 53 kg

DRUGS (5)
  1. HUMIRA [Suspect]
     Active Substance: ADALIMUMAB
     Indication: PRODUCT USED FOR UNKNOWN INDICATION
     Route: 058
     Dates: start: 2016
  2. HUMIRA [Suspect]
     Active Substance: ADALIMUMAB
     Route: 058
     Dates: start: 2020
  3. BEDOYECTA [Concomitant]
     Indication: PROPHYLAXIS
  4. METOTREXATE [Suspect]
     Active Substance: METHOTREXATE SODIUM
     Indication: PRODUCT USED FOR UNKNOWN INDICATION
     Route: 065
     Dates: end: 202001
  5. NAPROXEN. [Concomitant]
     Active Substance: NAPROXEN
     Indication: ANTIVIRAL PROPHYLAXIS

REACTIONS (5)
  - Dry eye [Unknown]
  - Oral herpes [Unknown]
  - Intervertebral disc protrusion [Unknown]
  - Glaucoma [Unknown]
  - Retinal disorder [Unknown]

NARRATIVE: CASE EVENT DATE: 2016
